FAERS Safety Report 14832702 (Version 1)
Quarter: 2018Q2

REPORT INFORMATION
  Report Type: Spontaneous
  Country: US (occurrence: US)
  Receive Date: 20180409
  Receipt Date: 20180409
  Transmission Date: 20180711
  Serious: No
  Sender: FDA-Public Use
  Company Number: None

PATIENT
  Sex: Female

DRUGS (4)
  1. CALCIPOTRIENE CREAM [Concomitant]
     Dates: start: 20180307, end: 20180402
  2. FLUOCINONIDE CREAM [Concomitant]
     Active Substance: FLUOCINONIDE
     Dates: start: 20180307, end: 20180402
  3. DICLOFENAC SODIUM. [Suspect]
     Active Substance: DICLOFENAC SODIUM
     Indication: PAIN
     Route: 061
     Dates: start: 20180307, end: 20180402
  4. DOXEPIN HCL [Suspect]
     Active Substance: DOXEPIN HYDROCHLORIDE
     Indication: PAIN
     Route: 061
     Dates: start: 20180307, end: 20180402

REACTIONS (5)
  - Skin tightness [None]
  - Erythema [None]
  - Skin exfoliation [None]
  - Scab [None]
  - Application site reaction [None]

NARRATIVE: CASE EVENT DATE: 20180331
